FAERS Safety Report 19942062 (Version 1)
Quarter: 2021Q4

REPORT INFORMATION
  Report Type: Spontaneous
  Country: US (occurrence: US)
  Receive Date: 20211008
  Receipt Date: 20211008
  Transmission Date: 20220303
  Serious: Yes (Hospitalization)
  Sender: FDA-Public Use
  Company Number: None

PATIENT
  Age: 66 Year
  Sex: Male
  Weight: 80 kg

DRUGS (1)
  1. BAMLANIVIMAB [Suspect]
     Active Substance: BAMLANIVIMAB
     Indication: COVID-19
     Dosage: ?          OTHER FREQUENCY:ONCE;
     Route: 042

REACTIONS (5)
  - COVID-19 [None]
  - Agitation [None]
  - Mental status changes [None]
  - Fibrin D dimer increased [None]
  - Toxic encephalopathy [None]

NARRATIVE: CASE EVENT DATE: 20210114
